FAERS Safety Report 6051742-6 (Version None)
Quarter: 2009Q1

REPORT INFORMATION
  Report Type: 
  Country: None (occurrence: None)
  Receive Date: 20090121
  Receipt Date: 20090121
  Transmission Date: 20090719
  Serious: Yes (Hospitalization, Disabling)
  Sender: FDA-Public Use
  Company Number: None

PATIENT
  Age: 27 Year
  Sex: Female
  Weight: 58.9676 kg

DRUGS (1)
  1. MIRENA [Suspect]
     Indication: INTRA-UTERINE CONTRACEPTIVE DEVICE
     Dates: start: 20030830, end: 20030920

REACTIONS (5)
  - IUCD COMPLICATION [None]
  - PAIN [None]
  - PELVIC PAIN [None]
  - SCAR [None]
  - UTERINE RUPTURE [None]
